FAERS Safety Report 4282578-4 (Version None)
Quarter: 2004Q1

REPORT INFORMATION
  Report Type: 
  Country: None (occurrence: None)
  Receive Date: 20040130
  Receipt Date: 20040122
  Transmission Date: 20041129
  Serious: Yes (Death, Life-Threatening)
  Sender: FDA-Public Use
  Company Number: FR-BRISTOL-MYERS SQUIBB COMPANY-12483418

PATIENT
  Age: 70 Year
  Sex: Female
  Weight: 113 kg

DRUGS (10)
  1. LYSODREN [Suspect]
     Indication: HYPERADRENOCORTICISM
     Dates: start: 20031121, end: 20031123
  2. SOTALOL HCL [Suspect]
     Route: 048
  3. ALPRESS [Suspect]
     Route: 048
     Dates: start: 20031121, end: 20031123
  4. RENITEC [Suspect]
     Route: 048
  5. LOXEN [Concomitant]
  6. ALDACTONE [Concomitant]
  7. KALEORID [Concomitant]
  8. MOPRAL [Concomitant]
  9. MUCOMYST [Concomitant]
  10. STILNOX [Concomitant]

REACTIONS (5)
  - ADRENAL INSUFFICIENCY [None]
  - ADRENAL NEOPLASM [None]
  - HYPOVOLAEMIC SHOCK [None]
  - RENAL FAILURE [None]
  - SHOCK HAEMORRHAGIC [None]
